FAERS Safety Report 8774242 (Version 2)
Quarter: 2013Q4

REPORT INFORMATION
  Report Type: Report from Study
  Country: JP (occurrence: JP)
  Receive Date: 20120907
  Receipt Date: 20131126
  Transmission Date: 20140711
  Serious: Yes (Other)
  Sender: FDA-Public Use
  Company Number: JP-VERTEX PHARMACEUTICAL INC.-2012-020677

PATIENT
  Age: 49 Year
  Sex: Male

DRUGS (8)
  1. REBETOL [Suspect]
     Indication: CHRONIC HEPATITIS C
     Dosage: 800 MG, QD
     Route: 048
     Dates: start: 20120517, end: 20120724
  2. REBETOL [Suspect]
     Dosage: 600 MG, QD
     Route: 048
     Dates: start: 20120727
  3. PEGINTRON [Suspect]
     Indication: CHRONIC HEPATITIS C
     Dosage: 1.5 ?G/KG, QW
     Route: 058
     Dates: start: 20120517, end: 20120719
  4. PEGINTRON [Suspect]
     Dosage: 0.75 ?G, QW
     Route: 058
     Dates: start: 20120726
  5. LOXONIN [Concomitant]
     Dosage: 60 MG, PRN
     Route: 048
     Dates: start: 20120517, end: 20120614
  6. CYTOTEC [Concomitant]
     Dosage: 200 MG, PRN
     Route: 048
     Dates: start: 20120517, end: 20120614
  7. GLYCYRON [Concomitant]
     Dosage: 6 DF, QD
     Route: 048
     Dates: end: 20120614
  8. VX-950 (TELAPREVIR) [Suspect]
     Indication: CHRONIC HEPATITIS C
     Dosage: 2250 MG, QD
     Route: 048
     Dates: start: 20120517, end: 20120724

REACTIONS (1)
  - Hepatic encephalopathy [Recovered/Resolved]
